FAERS Safety Report 6570827-9 (Version None)
Quarter: 2010Q1

REPORT INFORMATION
  Report Type: 
  Country: None (occurrence: None)
  Receive Date: 20100204
  Receipt Date: 20100128
  Transmission Date: 20100710
  Serious: Yes (Hospitalization, Other)
  Sender: FDA-Public Use
  Company Number: US-JNJFOC-20091107157

PATIENT
  Sex: Female

DRUGS (7)
  1. TOPAMAX [Suspect]
     Indication: NIGHTMARE
     Route: 048
     Dates: start: 20091105, end: 20091113
  2. TOPAMAX [Suspect]
     Route: 048
     Dates: start: 20091105, end: 20091113
  3. TOPAMAX [Suspect]
     Indication: POST-TRAUMATIC STRESS DISORDER
     Route: 048
     Dates: start: 20091105, end: 20091113
  4. TOPAMAX [Suspect]
     Route: 048
     Dates: start: 20091105, end: 20091113
  5. CELEXA [Concomitant]
     Indication: ANXIETY
  6. CELEXA [Concomitant]
     Indication: DEPRESSION
  7. AMBIEN [Concomitant]
     Indication: SLEEP DISORDER
     Dosage: 10 MG Q HS

REACTIONS (4)
  - DIZZINESS [None]
  - INTRAOCULAR PRESSURE INCREASED [None]
  - NAUSEA [None]
  - VISUAL IMPAIRMENT [None]
